FAERS Safety Report 9315857 (Version 1)
Quarter: 2013Q2

REPORT INFORMATION
  Report Type: Spontaneous
  Country: US (occurrence: US)
  Receive Date: 20130530
  Receipt Date: 20130530
  Transmission Date: 20140414
  Serious: No
  Sender: FDA-Public Use
  Company Number: US-009507513-1305USA016606

PATIENT
  Sex: Female
  Weight: 66.67 kg

DRUGS (5)
  1. MIRALAX [Suspect]
     Indication: PRODUCT USED FOR UNKNOWN INDICATION
     Dosage: 17 G, UNKNOWN
     Route: 048
     Dates: start: 201207, end: 201304
  2. MIRALAX [Suspect]
     Indication: MEDICAL OBSERVATION
  3. LIPITOR [Concomitant]
     Indication: BLOOD CHOLESTEROL INCREASED
     Dosage: UNK, UNKNOWN
  4. SYNTHROID [Concomitant]
     Indication: THYROID DISORDER
     Dosage: UNK, UNKNOWN
  5. SANCTURA [Concomitant]
     Indication: BLADDER DISORDER
     Dosage: UNK, UNKNOWN

REACTIONS (2)
  - Inappropriate schedule of drug administration [Unknown]
  - Product taste abnormal [Unknown]
